FAERS Safety Report 8508561 (Version 3)
Quarter: 2012Q4

REPORT INFORMATION
  Report Type: 
  Country: US (occurrence: US)
  Receive Date: 20120412
  Receipt Date: 20121008
  Transmission Date: 20130627
  Serious: Yes (Hospitalization, Other)
  Sender: FDA-Public Use
  Company Number: US-ASTRAZENECA-2012SE03251

PATIENT
  Age: 55 Year
  Sex: Female

DRUGS (15)
  1. NEXIUM [Suspect]
     Route: 048
  2. PRILOSEC [Suspect]
     Route: 048
  3. ADVAIR DISKUS [Concomitant]
  4. SPIRIVA HANDIHALER [Concomitant]
  5. THEO-24 [Concomitant]
  6. SINGULAIR [Concomitant]
  7. DALIRESP [Concomitant]
  8. ZOLOFT [Concomitant]
  9. ZOCOR [Concomitant]
  10. ELAVIL [Concomitant]
  11. REQUIP [Concomitant]
  12. ATIVAN [Concomitant]
  13. MUCINEX [Concomitant]
  14. ZYRTEC [Concomitant]
  15. NORCO [Concomitant]

REACTIONS (6)
  - Pneumonia [Unknown]
  - Gastrooesophageal reflux disease [Unknown]
  - Choking [Unknown]
  - Chronic obstructive pulmonary disease [Unknown]
  - Drug dose omission [Unknown]
  - Drug ineffective [Unknown]
